FAERS Safety Report 4373715-1 (Version None)
Quarter: 2004Q1

REPORT INFORMATION
  Report Type: 
  Country: None (occurrence: None)
  Receive Date: 20040305
  Receipt Date: 20040105
  Transmission Date: 20041129
  Serious: Yes (Other)
  Sender: FDA-Public Use
  Company Number: 2004UW00064

PATIENT
  Age: 75 Year
  Sex: Female
  Weight: 68.9467 kg

DRUGS (4)
  1. CRESTOR [Suspect]
     Indication: HYPERCHOLESTEROLAEMIA
     Dosage: 10 MG QD PO
     Route: 048
  2. LOTENSIN [Concomitant]
  3. VERAPAMIL [Concomitant]
  4. ISOSORBIDE [Concomitant]

REACTIONS (1)
  - MUSCLE SPASMS [None]
